FAERS Safety Report 4836171-2 (Version None)
Quarter: 2005Q4

REPORT INFORMATION
  Report Type: 
  Country: None (occurrence: None)
  Receive Date: 20051123
  Receipt Date: 20051114
  Transmission Date: 20060501
  Serious: Yes (Death)
  Sender: FDA-Public Use
  Company Number: DE-JNJFOC-20051103704

PATIENT
  Age: 73 Year
  Sex: Female

DRUGS (3)
  1. DURAGESIC-100 [Suspect]
     Indication: PAIN
     Route: 062
  2. MELPERON [Concomitant]
     Route: 065
  3. CAPTOFLUX [Concomitant]
     Route: 065

REACTIONS (2)
  - MEGACOLON [None]
  - PYREXIA [None]
